FAERS Safety Report 5655429-0 (Version None)
Quarter: 2008Q1

REPORT INFORMATION
  Report Type: 
  Country: None (occurrence: None)
  Receive Date: 20080307
  Receipt Date: 20080226
  Transmission Date: 20080703
  Serious: Yes (Other)
  Sender: FDA-Public Use
  Company Number: PHHY2008JP02339

PATIENT
  Age: 85 Year
  Sex: Female

DRUGS (5)
  1. DIOVAN [Suspect]
     Indication: HYPERTENSION
     Dosage: 120 MG, QD
     Route: 048
     Dates: start: 20060101, end: 20080220
  2. PREDONINE [Suspect]
     Dosage: 5 MG, UNK
     Route: 048
  3. VOLTAREN [Suspect]
     Route: 048
  4. DIGOXIN [Concomitant]
     Dosage: 0.625 MG, UNK
     Route: 048
  5. ALDACTONE [Suspect]
     Dosage: 25 MG, QD
     Route: 048
     Dates: start: 20071001, end: 20080101

REACTIONS (1)
  - HYPERKALAEMIA [None]
